FAERS Safety Report 7337033-1 (Version None)
Quarter: 2011Q1

REPORT INFORMATION
  Report Type: 
  Country: None (occurrence: None)
  Receive Date: 20110308
  Receipt Date: 20100209
  Transmission Date: 20110831
  Serious: No
  Sender: FDA-Public Use
  Company Number: US-BAYER-201014224NA

PATIENT
  Sex: Female

DRUGS (4)
  1. MIRENA [Suspect]
     Indication: POSTMENOPAUSAL HAEMORRHAGE
     Dosage: UNK
     Dates: start: 20091119
  2. METFORMIN HCL [Suspect]
  3. GLIPIZIDE [Suspect]
  4. LANTUS [Suspect]

REACTIONS (1)
  - GLYCOSYLATED HAEMOGLOBIN INCREASED [None]
